FAERS Safety Report 5152270-2 (Version None)
Quarter: 2006Q4

REPORT INFORMATION
  Report Type: 
  Country: None (occurrence: None)
  Receive Date: 20061109
  Receipt Date: 20061030
  Transmission Date: 20070319
  Serious: Yes (Other)
  Sender: FDA-Public Use
  Company Number: 2006133533

PATIENT
  Sex: Female

DRUGS (3)
  1. GEODON [Suspect]
     Indication: BIPOLAR DISORDER
     Dosage: 160 MG (160 MG, 1 IN 1 D); ORAL
     Route: 048
     Dates: start: 20010101
  2. ENALAPRIL MALEATE [Concomitant]
  3. CLONAZEPAM [Concomitant]

REACTIONS (2)
  - MUSCLE ATROPHY [None]
  - PAIN [None]
